FAERS Safety Report 25875970 (Version 2)
Quarter: 2025Q4

REPORT INFORMATION
  Report Type: Report from Study
  Country: CA (occurrence: CA)
  Receive Date: 20251003
  Receipt Date: 20251112
  Transmission Date: 20260117
  Serious: Yes (Other)
  Sender: TAKEDA
  Company Number: CA-TAKEDA-2025TUS045061

PATIENT
  Age: 72 Year
  Sex: Female

DRUGS (8)
  1. VEDOLIZUMAB [Suspect]
     Active Substance: VEDOLIZUMAB
     Indication: Colitis ulcerative
     Dosage: 300 MILLIGRAM
  2. VEDOLIZUMAB [Suspect]
     Active Substance: VEDOLIZUMAB
     Dosage: 300 MILLIGRAM, Q4WEEKS
     Dates: start: 20250609
  3. PREDNISONE [Concomitant]
     Active Substance: PREDNISONE
     Dosage: UNK
  4. Salofalk [Concomitant]
     Dosage: UNK
  5. CHLORTHALIDONE [Concomitant]
     Active Substance: CHLORTHALIDONE
     Dosage: 12.5 MILLIGRAM, QD
  6. CHLORTHALIDONE [Concomitant]
     Active Substance: CHLORTHALIDONE
     Dosage: 25 MILLIGRAM
  7. POTASSIUM CHLORIDE [Concomitant]
     Active Substance: POTASSIUM CHLORIDE
     Dosage: UNK
  8. RAMIPRIL [Concomitant]
     Active Substance: RAMIPRIL
     Dosage: UNK

REACTIONS (3)
  - Colitis ulcerative [Unknown]
  - Therapeutic reaction time decreased [Unknown]
  - Off label use [Unknown]

NARRATIVE: CASE EVENT DATE: 20250609
